FAERS Safety Report 17529827 (Version 2)
Quarter: 2020Q1

REPORT INFORMATION
  Report Type: Report from Study
  Country: CA (occurrence: CA)
  Receive Date: 20200312
  Receipt Date: 20200312
  Transmission Date: 20200409
  Serious: Yes (Other)
  Sender: FDA-Public Use
  Company Number: CA-ORION CORPORATION ORION PHARMA-TREX2020-1288

PATIENT
  Age: 58 Year
  Sex: Female

DRUGS (6)
  1. OTEZLA [Concomitant]
     Active Substance: APREMILAST
     Route: 065
  2. METHOTREXATE (TRADE NAME UNKNOWN) [Suspect]
     Active Substance: METHOTREXATE
     Indication: PRODUCT USED FOR UNKNOWN INDICATION
     Route: 065
  3. CICLOSPORIN [Suspect]
     Active Substance: CYCLOSPORINE
     Indication: PSORIASIS
     Route: 065
  4. DERMOVATE [Concomitant]
     Active Substance: CLOBETASOL
     Route: 065
  5. ELIDEL [Concomitant]
     Active Substance: PIMECROLIMUS
     Route: 065
  6. PROTOPIC [Concomitant]
     Active Substance: TACROLIMUS
     Route: 065

REACTIONS (10)
  - Pain of skin [Unknown]
  - Pruritus [Unknown]
  - Nephrolithiasis [Unknown]
  - Genital discomfort [Unknown]
  - Migraine [Unknown]
  - Drug ineffective [Unknown]
  - Contraindicated product administered [Unknown]
  - Vomiting [Unknown]
  - Emotional distress [Unknown]
  - Skin disorder [Unknown]
